FAERS Safety Report 4314372-X (Version None)
Quarter: 2004Q1

REPORT INFORMATION
  Report Type: 
  Country: None (occurrence: None)
  Receive Date: 20040308
  Receipt Date: 20040224
  Transmission Date: 20041129
  Serious: Yes (Hospitalization)
  Sender: FDA-Public Use
  Company Number: 2004-BP-01355BP

PATIENT
  Age: 89 Year
  Sex: Female

DRUGS (3)
  1. AGGRENOX [Suspect]
     Indication: CEREBROVASCULAR ACCIDENT PROPHYLAXIS
     Dosage: SEE IMAGE, PO
     Route: 048
     Dates: end: 20031120
  2. PREVACID [Concomitant]
  3. KEPPRA [Concomitant]

REACTIONS (7)
  - ANAEMIA [None]
  - BENIGN COLONIC NEOPLASM [None]
  - COLONIC POLYP [None]
  - CONVULSION [None]
  - GASTRITIS [None]
  - RECTAL HAEMORRHAGE [None]
  - STOMACH DISCOMFORT [None]
